FAERS Safety Report 5782910-6 (Version None)
Quarter: 2008Q2

REPORT INFORMATION
  Report Type: 
  Country: None (occurrence: None)
  Receive Date: 20080624
  Receipt Date: 20080620
  Transmission Date: 20081010
  Serious: Yes (Hospitalization)
  Sender: FDA-Public Use
  Company Number: DE-MERCK-0802DEU00029

PATIENT
  Age: 68 Year
  Sex: Male
  Weight: 72 kg

DRUGS (3)
  1. VYTORIN [Suspect]
     Indication: HYPERCHOLESTEROLAEMIA
     Route: 048
     Dates: start: 20071001, end: 20071001
  2. VYTORIN [Suspect]
     Route: 048
     Dates: start: 20070101, end: 20070101
  3. ACTOS [Suspect]
     Indication: TYPE 2 DIABETES MELLITUS
     Route: 048
     Dates: start: 20070101, end: 20071001

REACTIONS (3)
  - HYPOGLYCAEMIA [None]
  - LIVER DISORDER [None]
  - WRONG TECHNIQUE IN DRUG USAGE PROCESS [None]
